FAERS Safety Report 5968295-0 (Version None)
Quarter: 2008Q4

REPORT INFORMATION
  Report Type: 
  Country: None (occurrence: None)
  Receive Date: 20081126
  Receipt Date: 20081118
  Transmission Date: 20090506
  Serious: Yes (Hospitalization)
  Sender: FDA-Public Use
  Company Number: FR-ASTRAZENECA-2008CG01216

PATIENT
  Age: 79 Year
  Sex: Male

DRUGS (12)
  1. NEXIUM [Suspect]
     Indication: ABDOMINAL PAIN
     Route: 048
     Dates: start: 20041001, end: 20040101
  2. NEXIUM [Suspect]
     Route: 048
     Dates: start: 20080528, end: 20080623
  3. FUROSEMIDE [Concomitant]
  4. KARDEGIC [Concomitant]
  5. KARDEGIC [Concomitant]
     Dates: start: 20080501, end: 20080701
  6. PLAVIX [Concomitant]
  7. ASPEGIC 325 [Concomitant]
     Dates: start: 20080623
  8. SINTROM [Concomitant]
  9. NEORECORMON [Concomitant]
  10. LEVOTHYROX [Concomitant]
  11. TAHOR [Concomitant]
  12. APROVEL [Concomitant]

REACTIONS (1)
  - DRUG RASH WITH EOSINOPHILIA AND SYSTEMIC SYMPTOMS [None]
